FAERS Safety Report 9925173 (Version 1)
Quarter: 2014Q1

REPORT INFORMATION
  Report Type: Spontaneous
  Country: US (occurrence: US)
  Receive Date: 20140226
  Receipt Date: 20140226
  Transmission Date: 20141002
  Serious: No
  Sender: FDA-Public Use
  Company Number: US-BAYER-2014-030297

PATIENT
  Age: 83 Year
  Sex: Male
  Weight: 88 kg

DRUGS (1)
  1. ALEVE CAPLET [Suspect]
     Dosage: 1 UNK, UNK
     Route: 048
     Dates: start: 20140210

REACTIONS (1)
  - Incorrect drug administration duration [None]
